FAERS Safety Report 15231028 (Version 1)
Quarter: 2018Q3

REPORT INFORMATION
  Report Type: Spontaneous
  Country: US (occurrence: US)
  Receive Date: 20180802
  Receipt Date: 20180802
  Transmission Date: 20181010
  Serious: Yes (Other)
  Sender: FDA-Public Use
  Company Number: US-ACCORD-064214

PATIENT
  Age: 69 Year
  Sex: Female

DRUGS (15)
  1. BENADRYL [Concomitant]
     Active Substance: DIPHENHYDRAMINE HYDROCHLORIDE
     Route: 042
  2. ZETIA [Concomitant]
     Active Substance: EZETIMIBE
     Dates: start: 20120127
  3. SERTRALINE [Concomitant]
     Active Substance: SERTRALINE HYDROCHLORIDE
     Dates: start: 20120127
  4. CARTIA XT [Concomitant]
     Active Substance: DILTIAZEM HYDROCHLORIDE
     Dates: start: 20120218
  5. GABAPENTIN. [Concomitant]
     Active Substance: GABAPENTIN
     Dates: start: 20120914
  6. VENLAFAXINE/VENLAFAXINE HYDROCHLORIDE [Concomitant]
     Dates: start: 20130829
  7. DOCETAXEL ACCORD [Suspect]
     Active Substance: DOCETAXEL
     Indication: BREAST CANCER STAGE II
     Route: 042
     Dates: start: 20140821, end: 20141204
  8. ALOXI [Concomitant]
     Active Substance: PALONOSETRON HYDROCHLORIDE
     Route: 042
  9. CYTOXAN [Suspect]
     Active Substance: CYCLOPHOSPHAMIDE
     Indication: BREAST CANCER STAGE II
     Route: 042
     Dates: start: 20140821, end: 20141204
  10. EMEND [Concomitant]
     Active Substance: APREPITANT
     Route: 042
  11. NAPROXEN. [Concomitant]
     Active Substance: NAPROXEN
     Dates: start: 20120215
  12. DEXAMETHASONE. [Concomitant]
     Active Substance: DEXAMETHASONE
     Route: 042
  13. NEULASTA [Concomitant]
     Active Substance: PEGFILGRASTIM
     Route: 058
  14. DILTIAZEM. [Concomitant]
     Active Substance: DILTIAZEM
     Dates: start: 20121102, end: 20171019
  15. TRIAMTERENE. [Concomitant]
     Active Substance: TRIAMTERENE
     Dates: start: 20120619, end: 20170911

REACTIONS (1)
  - Alopecia [Not Recovered/Not Resolved]

NARRATIVE: CASE EVENT DATE: 20150604
